FAERS Safety Report 8880488 (Version 2)
Quarter: 2012Q4

REPORT INFORMATION
  Report Type: 
  Country: BE (occurrence: BE)
  Receive Date: 20121031
  Receipt Date: 20121114
  Transmission Date: 20130627
  Serious: Yes (Other)
  Sender: FDA-Public Use
  Company Number: BE-PFIZER INC-2012272257

PATIENT
  Age: 2 Year
  Sex: Female
  Weight: 11 kg

DRUGS (2)
  1. PERDOPHEN [Suspect]
     Indication: CHICKENPOX
     Dosage: 4 times a day
     Route: 048
     Dates: start: 201204, end: 201204
  2. PERDOLAN BABY [Concomitant]
     Dosage: UNK
     Route: 054
     Dates: start: 201204

REACTIONS (1)
  - Skin bacterial infection [Recovered/Resolved]
